FAERS Safety Report 21220327 (Version 2)
Quarter: 2023Q4

REPORT INFORMATION
  Report Type: Report from Study
  Country: BR (occurrence: BR)
  Receive Date: 20220817
  Receipt Date: 20231215
  Transmission Date: 20240110
  Serious: Yes (Other)
  Sender: FDA-Public Use
  Company Number: BR-NOVARTISPH-NVSC2022BR185028

PATIENT
  Sex: Female
  Weight: 57 kg

DRUGS (1)
  1. COSENTYX [Suspect]
     Active Substance: SECUKINUMAB
     Indication: Psoriatic arthropathy
     Dosage: UNK (LAST APPLICATION PERFORMED BETWEEN 3RD AND 4TH AUG 2022)
     Route: 065

REACTIONS (7)
  - Haemorrhage [Unknown]
  - Weight decreased [Recovering/Resolving]
  - Skin discolouration [Unknown]
  - Finger deformity [Not Recovered/Not Resolved]
  - Arthralgia [Recovering/Resolving]
  - Peripheral swelling [Unknown]
  - Joint swelling [Unknown]
